FAERS Safety Report 7283504-6 (Version None)
Quarter: 2011Q1

REPORT INFORMATION
  Report Type: 
  Country: None (occurrence: None)
  Receive Date: 20110209
  Receipt Date: 20110203
  Transmission Date: 20110831
  Serious: Yes (Life-Threatening)
  Sender: FDA-Public Use
  Company Number: JP-ALLERGAN-1101089US

PATIENT
  Age: 68 Year
  Sex: Male

DRUGS (18)
  1. GATIFLOXACIN [Suspect]
     Dosage: TWO TIMES
  2. CANDESARTAN [Concomitant]
     Indication: PRODUCT USED FOR UNKNOWN INDICATION
     Dosage: UNK
     Dates: start: 20101022
  3. BETAMETHASONE [Concomitant]
     Dosage: UNK
     Dates: start: 20101001, end: 20101107
  4. DICLOFENAC SODIUM [Concomitant]
     Indication: PRODUCT USED FOR UNKNOWN INDICATION
     Dosage: UNK
     Dates: start: 20101029, end: 20101108
  5. TROPICAMIDE [Concomitant]
     Indication: PRODUCT USED FOR UNKNOWN INDICATION
     Dosage: UNK
     Dates: start: 20101029, end: 20101101
  6. BETAMETHASONE [Concomitant]
     Indication: PRODUCT USED FOR UNKNOWN INDICATION
     Dosage: UNK
     Dates: start: 20101129
  7. BETAMETHASONE [Concomitant]
     Dosage: UNK
     Dates: start: 20101108, end: 20101121
  8. GATIFLOXACIN [Suspect]
     Indication: CATARACT OPERATION
     Dosage: FOUR TIMES
     Route: 047
     Dates: start: 20101023
  9. DICLOFENAC SODIUM [Concomitant]
     Dosage: UNK
     Dates: start: 20101023, end: 20101028
  10. DILAZEP DIHYDROCHLORIDE [Concomitant]
     Indication: PRODUCT USED FOR UNKNOWN INDICATION
     Dosage: UNK
     Dates: start: 19971014
  11. TROPICAMIDE [Concomitant]
     Dosage: UNK
     Dates: start: 20101023, end: 20101028
  12. OPEGUARD MA [Suspect]
     Indication: PRODUCT USED FOR UNKNOWN INDICATION
     Dosage: UNK
     Dates: start: 20101025, end: 20101025
  13. GATIFLOXACIN [Suspect]
     Dosage: THREE TIMES
  14. BETAMETHASONE [Concomitant]
     Dosage: UNK
     Dates: start: 20101122, end: 20101128
  15. BETAMETHASONE [Concomitant]
     Dosage: UNK
     Dates: start: 20101009, end: 20101023
  16. DICLOFENAC SODIUM [Concomitant]
     Dosage: UNK
     Dates: start: 20101009, end: 20101101
  17. CEFDINIR [Concomitant]
  18. TROPICAMIDE [Concomitant]
     Dosage: UNK
     Dates: start: 20101009, end: 20101015

REACTIONS (5)
  - CORNEAL OEDEMA [None]
  - INTRAOCULAR PRESSURE INCREASED [None]
  - CORNEAL OPACITY [None]
  - CORNEAL DISORDER [None]
  - VISUAL ACUITY REDUCED [None]
